FAERS Safety Report 7679630-X (Version None)
Quarter: 2011Q3

REPORT INFORMATION
  Report Type: 
  Country: None (occurrence: None)
  Receive Date: 20110805
  Receipt Date: 20110801
  Transmission Date: 20111222
  Serious: Yes (Hospitalization, Other)
  Sender: FDA-Public Use
  Company Number: 2011SP017708

PATIENT
  Age: 19 Year
  Sex: Female

DRUGS (8)
  1. SAPHRIS [Suspect]
     Indication: BIPOLAR DISORDER
     Dosage: 5, 10 MG, BID,SL
     Route: 060
     Dates: start: 20110303, end: 20110331
  2. SAPHRIS [Suspect]
     Indication: PSYCHOTIC DISORDER
     Dosage: 5, 10 MG, BID,SL
     Route: 060
     Dates: start: 20110303, end: 20110331
  3. SAPHRIS [Suspect]
     Indication: BIPOLAR DISORDER
     Dosage: 5, 10 MG, BID,SL
     Route: 060
     Dates: start: 20110407
  4. SAPHRIS [Suspect]
     Indication: PSYCHOTIC DISORDER
     Dosage: 5, 10 MG, BID,SL
     Route: 060
     Dates: start: 20110407
  5. SAPHRIS [Suspect]
     Indication: BIPOLAR DISORDER
     Dosage: 5, 10 MG, BID,SL
     Route: 060
     Dates: end: 20110418
  6. SAPHRIS [Suspect]
     Indication: PSYCHOTIC DISORDER
     Dosage: 5, 10 MG, BID,SL
     Route: 060
     Dates: end: 20110418
  7. SEROQUEL XR [Concomitant]
  8. PROZAC [Concomitant]

REACTIONS (1)
  - EPISTAXIS [None]
